FAERS Safety Report 7342285-8 (Version None)
Quarter: 2011Q1

REPORT INFORMATION
  Report Type: 
  Country: None (occurrence: None)
  Receive Date: 20110310
  Receipt Date: 20110228
  Transmission Date: 20110831
  Serious: No
  Sender: FDA-Public Use
  Company Number: US-BIOGENIDEC-2010BI032165

PATIENT
  Age: 47 Year
  Sex: Female

DRUGS (2)
  1. TYSABRI [Suspect]
     Indication: MULTIPLE SCLEROSIS
     Route: 042
     Dates: start: 20100910
  2. BENADRYL [Concomitant]
     Indication: PREMEDICATION
     Dates: start: 20101011

REACTIONS (17)
  - INFUSION SITE ERYTHEMA [None]
  - VIBRATORY SENSE INCREASED [None]
  - FATIGUE [None]
  - PARAESTHESIA [None]
  - FEELING COLD [None]
  - HEADACHE [None]
  - VERTIGO [None]
  - LETHARGY [None]
  - PAIN [None]
  - CHEST DISCOMFORT [None]
  - DISTURBANCE IN ATTENTION [None]
  - LIP SWELLING [None]
  - INFUSION SITE PRURITUS [None]
  - PALPITATIONS [None]
  - HYPOAESTHESIA [None]
  - SWOLLEN TONGUE [None]
  - PRURITUS [None]
